FAERS Safety Report 25836607 (Version 1)
Quarter: 2025Q3

REPORT INFORMATION
  Report Type: Spontaneous
  Country: CN (occurrence: CN)
  Receive Date: 20250923
  Receipt Date: 20250923
  Transmission Date: 20251020
  Serious: Yes (Hospitalization, Other)
  Sender: BAXTER
  Company Number: None

PATIENT
  Age: 62 Year
  Sex: Female
  Weight: 56 kg

DRUGS (4)
  1. CYCLOPHOSPHAMIDE [Suspect]
     Active Substance: CYCLOPHOSPHAMIDE
     Indication: Breast cancer female
     Dosage: 0.9 G, QD
     Route: 041
     Dates: start: 20250905, end: 20250905
  2. SODIUM CHLORIDE [Suspect]
     Active Substance: SODIUM CHLORIDE
     Dosage: 500 ML, QD, 0.9% (WITH CYCLOPHOSPHAMIDE)
     Route: 041
     Dates: start: 20250905, end: 20250905
  3. DEXTROSE [Suspect]
     Active Substance: DEXTROSE MONOHYDRATE
     Dosage: 500 ML, QD, 5% (WITH PACLITAXEL LIPOSOME)
     Route: 041
     Dates: start: 20250905, end: 20250905
  4. PACLITAXEL [Suspect]
     Active Substance: PACLITAXEL
     Indication: Breast cancer female
     Dosage: 260 MG, QD
     Route: 041
     Dates: start: 20250905, end: 20250905

REACTIONS (6)
  - Hyperpyrexia [Recovering/Resolving]
  - Temperature intolerance [Recovering/Resolving]
  - Chills [Recovering/Resolving]
  - Blood pressure decreased [Recovering/Resolving]
  - Myelosuppression [Recovering/Resolving]
  - Cold sweat [Unknown]

NARRATIVE: CASE EVENT DATE: 20250910
